FAERS Safety Report 16714183 (Version 1)
Quarter: 2019Q3

REPORT INFORMATION
  Report Type: Report from Study
  Country: None (occurrence: DE)
  Receive Date: 20190819
  Receipt Date: 20190819
  Transmission Date: 20191004
  Serious: Yes (Hospitalization)
  Sender: FDA-Public Use
  Company Number: DE-ABBVIE-19K-062-2887281-00

PATIENT
  Sex: Female

DRUGS (6)
  1. DUODOPA [Suspect]
     Active Substance: CARBIDOPA\LEVODOPA
     Route: 050
  2. LEVODOPA [Concomitant]
     Active Substance: LEVODOPA
     Indication: PRODUCT USED FOR UNKNOWN INDICATION
     Dosage: AT NIGHT
  3. DUODOPA [Suspect]
     Active Substance: CARBIDOPA\LEVODOPA
     Indication: PARKINSON^S DISEASE
     Dosage: MD 8 ML; CRD 4 ML/HR;  ED 2 ML
     Route: 050
     Dates: start: 20190516
  4. DUODOPA [Suspect]
     Active Substance: CARBIDOPA\LEVODOPA
     Route: 050
  5. ALENDRONIC ACID [Concomitant]
     Active Substance: ALENDRONIC ACID
     Indication: PRODUCT USED FOR UNKNOWN INDICATION
  6. CALCIGEN [Concomitant]
     Indication: PRODUCT USED FOR UNKNOWN INDICATION

REACTIONS (3)
  - Ileus [Recovering/Resolving]
  - Peritonitis [Recovering/Resolving]
  - Device dislocation [Recovered/Resolved]

NARRATIVE: CASE EVENT DATE: 2019
